FAERS Safety Report 7943769-1 (Version None)
Quarter: 2011Q4

REPORT INFORMATION
  Report Type: 
  Country: None (occurrence: None)
  Receive Date: 20111128
  Receipt Date: 20110926
  Transmission Date: 20120403
  Serious: Yes (Hospitalization, Other)
  Sender: FDA-Public Use
  Company Number: US-ROCHE-772277

PATIENT
  Sex: Female
  Weight: 65.4 kg

DRUGS (4)
  1. PEGINTERFERON ALFA-2A [Suspect]
     Indication: HEPATITIS C
     Dosage: FORM: PRE-FILLED SYRINGE; IN WEEK 27.180MCG/WEEK
     Route: 058
     Dates: start: 20101121, end: 20110909
  2. COPEGUS [Suspect]
     Route: 048
  3. COPEGUS [Suspect]
     Route: 048
  4. COPEGUS [Suspect]
     Indication: HEPATITIS C
     Dosage: 600 MG IN MORNING AND 400 MG IN EVENING; IN WEEK 27
     Route: 048
     Dates: start: 20101121, end: 20110909

REACTIONS (28)
  - CANDIDIASIS [None]
  - NEUTROPENIA [None]
  - TRANSFUSION [None]
  - HYPOTONIA [None]
  - FATIGUE [None]
  - WEIGHT DECREASED [None]
  - PALLOR [None]
  - AMMONIA INCREASED [None]
  - DIZZINESS [None]
  - ALOPECIA [None]
  - MUSCLE TIGHTNESS [None]
  - MEMORY IMPAIRMENT [None]
  - ASTHENIA [None]
  - DIARRHOEA [None]
  - DRY SKIN [None]
  - ANAEMIA [None]
  - MUSCULOSKELETAL PAIN [None]
  - SKIN BURNING SENSATION [None]
  - OEDEMA PERIPHERAL [None]
  - FEELING ABNORMAL [None]
  - CHAPPED LIPS [None]
  - VOMITING [None]
  - DRUG INEFFECTIVE [None]
  - ARTHRITIS [None]
  - DECREASED APPETITE [None]
  - INJECTION SITE REACTION [None]
  - WHITE BLOOD CELL COUNT DECREASED [None]
  - NAUSEA [None]
